FAERS Safety Report 7039025-9 (Version None)
Quarter: 2010Q4

REPORT INFORMATION
  Report Type: 
  Country: None (occurrence: None)
  Receive Date: 20101012
  Receipt Date: 20101005
  Transmission Date: 20110411
  Serious: Yes (Death, Hospitalization, Disabling, Other)
  Sender: FDA-Public Use
  Company Number: US-ELI_LILLY_AND_COMPANY-US201009005891

PATIENT
  Sex: Male

DRUGS (9)
  1. GEMZAR [Suspect]
     Indication: PANCREATIC CARCINOMA
     Dosage: UNK, UNK
     Dates: start: 20100910, end: 20100910
  2. AVODART [Concomitant]
  3. LOVENOX [Concomitant]
  4. ATENOLOL [Concomitant]
  5. LEXAPRO [Concomitant]
  6. LORAZEPAM [Concomitant]
  7. REGLAN [Concomitant]
  8. PANTOPRAZOLE [Concomitant]
  9. PERCOCET [Concomitant]

REACTIONS (5)
  - ABASIA [None]
  - MUSCULAR WEAKNESS [None]
  - MYOCARDIAL INFARCTION [None]
  - NERVE INJURY [None]
  - PAIN IN EXTREMITY [None]
